FAERS Safety Report 5104071-9 (Version None)
Quarter: 2006Q3

REPORT INFORMATION
  Report Type: 
  Country: None (occurrence: None)
  Receive Date: 20060911
  Receipt Date: 20060824
  Transmission Date: 20061208
  Serious: Yes (Hospitalization)
  Sender: FDA-Public Use
  Company Number: 2006EU002444

PATIENT
  Age: 58 Year
  Sex: Female

DRUGS (3)
  1. PROGRAF [Suspect]
     Indication: RENAL TRANSPLANT
     Dates: start: 19980101
  2. CELLCEPT [Suspect]
     Indication: RENAL TRANSPLANT
  3. STEROID ANTIBACTERIALS) [Suspect]
     Indication: RENAL TRANSPLANT

REACTIONS (9)
  - CARDIAC FAILURE CONGESTIVE [None]
  - GLOMERULONEPHRITIS MEMBRANOPROLIFERATIVE [None]
  - KIDNEY TRANSPLANT REJECTION [None]
  - MITRAL VALVE INCOMPETENCE [None]
  - OSTEOPENIA [None]
  - PERICARDIAL EFFUSION [None]
  - PERICARDITIS [None]
  - RENAL FAILURE ACUTE [None]
  - RENAL FAILURE CHRONIC [None]
